FAERS Safety Report 22600719 (Version 1)
Quarter: 2023Q2

REPORT INFORMATION
  Report Type: Spontaneous
  Country: US (occurrence: US)
  Receive Date: 20230614
  Receipt Date: 20230614
  Transmission Date: 20230721
  Serious: Yes (Congenital Anomaly, Other)
  Sender: FDA-Public Use
  Company Number: US-002147023-NVSC2023US134460

PATIENT
  Weight: 3.73 kg

DRUGS (1)
  1. METFORMIN [Suspect]
     Active Substance: METFORMIN HYDROCHLORIDE
     Indication: Foetal exposure during pregnancy
     Dosage: UNK
     Route: 064

REACTIONS (14)
  - Micropenis [Unknown]
  - Pulmonary valve stenosis congenital [Unknown]
  - Congenital eye disorder [Unknown]
  - Low set ears [Unknown]
  - Hamartoma [Unknown]
  - Congenital arachnoid cyst [Unknown]
  - Polydactyly [Unknown]
  - Tricuspid valve incompetence [Unknown]
  - Nose deformity [Unknown]
  - Atrial septal defect [Unknown]
  - Eyelid ptosis congenital [Unknown]
  - Hypotonia neonatal [Unknown]
  - Developmental delay [Unknown]
  - Foetal exposure during pregnancy [Unknown]
